FAERS Safety Report 5189054-5 (Version None)
Quarter: 2006Q4

REPORT INFORMATION
  Report Type: 
  Country: None (occurrence: None)
  Receive Date: 20061215
  Receipt Date: 20061204
  Transmission Date: 20070319
  Serious: Yes (Other)
  Sender: FDA-Public Use
  Company Number: SP-2006-003365

PATIENT
  Age: 44 Year
  Sex: Female
  Weight: 85 kg

DRUGS (5)
  1. OLMETEC [Suspect]
     Indication: HYPERTENSION
     Dosage: 10 MG QD PO
     Route: 048
     Dates: start: 20061016
  2. LITHIUM CARBONATE [Suspect]
     Indication: DEPRESSION
     Dates: start: 20030101
  3. PIOGLITAZONE HCL [Concomitant]
  4. SIMVASTATIN [Concomitant]
  5. VENLAFAXINE HCL [Concomitant]

REACTIONS (2)
  - ANTIPSYCHOTIC DRUG LEVEL BELOW THERAPEUTIC [None]
  - DRUG INTERACTION [None]
